FAERS Safety Report 4832649-6 (Version None)
Quarter: 2005Q4

REPORT INFORMATION
  Report Type: 
  Country: None (occurrence: None)
  Receive Date: 20051117
  Receipt Date: 20051117
  Transmission Date: 20060501
  Serious: Yes (Other)
  Sender: FDA-Public Use
  Company Number: None

PATIENT
  Weight: 60.1 kg

DRUGS (1)
  1. CIPRO IV [Suspect]
     Indication: PROPHYLAXIS
     Dosage: 400 MG PRE-OP IV
     Route: 042
     Dates: start: 20051110

REACTIONS (3)
  - ERYTHEMA [None]
  - PAIN IN EXTREMITY [None]
  - PRURITUS [None]
